FAERS Safety Report 8560128-1 (Version None)
Quarter: 2012Q3

REPORT INFORMATION
  Report Type: 
  Country: None (occurrence: None)
  Receive Date: 20120723
  Receipt Date: 20120712
  Transmission Date: 20120928
  Serious: Yes (Death)
  Sender: FDA-Public Use
  Company Number: 2012MA008802

PATIENT
  Age: 46 Year
  Sex: Male

DRUGS (3)
  1. OXYCODONE HCL [Suspect]
  2. ZOPICLONE (ZOPICLONE) [Suspect]
  3. ETHANOL (ETHANOL) [Suspect]

REACTIONS (2)
  - DRUG INTERACTION [None]
  - TOXICITY TO VARIOUS AGENTS [None]
